FAERS Safety Report 6310209-8 (Version None)
Quarter: 2009Q3

REPORT INFORMATION
  Report Type: 
  Country: None (occurrence: None)
  Receive Date: 20090814
  Receipt Date: 20090810
  Transmission Date: 20100115
  Serious: Yes (Hospitalization)
  Sender: FDA-Public Use
  Company Number: IN-ELI_LILLY_AND_COMPANY-IN200908002047

PATIENT
  Age: 63 Year
  Sex: Female

DRUGS (1)
  1. XIGRIS [Suspect]
     Indication: POST PROCEDURAL SEPSIS
     Dosage: UNK, UNKNOWN
     Route: 042
     Dates: start: 20090808, end: 20090810

REACTIONS (1)
  - THROMBOCYTOPENIA [None]
